FAERS Safety Report 14137425 (Version 1)
Quarter: 2017Q4

REPORT INFORMATION
  Report Type: Spontaneous
  Country: US (occurrence: US)
  Receive Date: 20171027
  Receipt Date: 20171027
  Transmission Date: 20180321
  Serious: Yes (Other)
  Sender: FDA-Public Use
  Company Number: US-PFIZER INC-2017462726

PATIENT
  Age: 64 Year
  Sex: Male

DRUGS (2)
  1. ALTACE [Suspect]
     Active Substance: RAMIPRIL
     Dosage: UNK
     Dates: start: 2008
  2. ALTACE [Suspect]
     Active Substance: RAMIPRIL
     Dosage: UNK
     Dates: start: 1999

REACTIONS (3)
  - Appendix cancer [Unknown]
  - Platelet count decreased [Unknown]
  - Cough [Recovered/Resolved]

NARRATIVE: CASE EVENT DATE: 2008
